FAERS Safety Report 13713831 (Version 1)
Quarter: 2017Q3

REPORT INFORMATION
  Report Type: Spontaneous
  Country: US (occurrence: US)
  Receive Date: 20170704
  Receipt Date: 20170704
  Transmission Date: 20171127
  Serious: No
  Sender: FDA-Public Use
  Company Number: US-LUPIN PHARMACEUTICALS INC.-2017-02672

PATIENT
  Age: 7 Year
  Sex: Female
  Weight: 32.65 kg

DRUGS (1)
  1. CETIRIZINE HYDROCHLORIDE CHEWABLE TABLET, 10 MG [Suspect]
     Active Substance: CETIRIZINE HYDROCHLORIDE
     Indication: HYPERSENSITIVITY
     Dosage: ONCE A DAY
     Route: 065
     Dates: start: 20170511, end: 20170518

REACTIONS (2)
  - Vomiting [Unknown]
  - Product physical consistency issue [Unknown]

NARRATIVE: CASE EVENT DATE: 20170519
